FAERS Safety Report 23327081 (Version 2)
Quarter: 2024Q3

REPORT INFORMATION
  Report Type: Report from Study
  Country: JP (occurrence: JP)
  Receive Date: 20231221
  Receipt Date: 20240702
  Transmission Date: 20241017
  Serious: Yes (Death, Other)
  Sender: UCB
  Company Number: JP-UCBSA-2023058811

PATIENT
  Age: 57 Year
  Sex: Male

DRUGS (10)
  1. ROTIGOTINE [Suspect]
     Active Substance: ROTIGOTINE
     Indication: Parkinsonism
     Dosage: 22.5 MILLIGRAM
  2. BENSERAZIDE\LEVODOPA [Concomitant]
     Active Substance: BENSERAZIDE\LEVODOPA
     Indication: Parkinson^s disease
     Dosage: 300 MILLIGRAM
  3. BENSERAZIDE\LEVODOPA [Concomitant]
     Active Substance: BENSERAZIDE\LEVODOPA
     Dosage: 100 MILLIGRAM
  4. CARBIDOPA\LEVODOPA [Concomitant]
     Active Substance: CARBIDOPA\LEVODOPA
     Indication: Parkinsonism
     Dosage: 450 MILLIGRAM
  5. CARBIDOPA\LEVODOPA [Concomitant]
     Active Substance: CARBIDOPA\LEVODOPA
     Dosage: 1600 MILLIGRAM, ONCE DAILY (QD)
  6. ENTACAPONE [Concomitant]
     Active Substance: ENTACAPONE
     Indication: Parkinsonism
     Dosage: 800 MILLIGRAM
  7. ZONISAMIDE [Concomitant]
     Active Substance: ZONISAMIDE
     Indication: Parkinsonism
     Dosage: 50 MILLIGRAM
  8. SELEGILINE [Concomitant]
     Active Substance: SELEGILINE
     Indication: Parkinsonism
     Dosage: 5 MILLIGRAM
  9. ISTRADEFYLLINE [Concomitant]
     Active Substance: ISTRADEFYLLINE
     Indication: Parkinsonism
     Dosage: 20 MILLIGRAM
  10. LEVODOPA [Concomitant]
     Active Substance: LEVODOPA
     Indication: Parkinson^s disease
     Dosage: TITRATED UP TO 1,000 MG/DAY.

REACTIONS (3)
  - Cardio-respiratory arrest [Fatal]
  - Dystonia [Recovered/Resolved]
  - Off label use [Unknown]
